FAERS Safety Report 7151495-4 (Version None)
Quarter: 2010Q4

REPORT INFORMATION
  Report Type: 
  Country: None (occurrence: None)
  Receive Date: 20101210
  Receipt Date: 20101202
  Transmission Date: 20110411
  Serious: Yes (Other)
  Sender: FDA-Public Use
  Company Number: US-SHIRE-SPV1-2010-02054

PATIENT
  Sex: Male
  Weight: 28.571 kg

DRUGS (4)
  1. GUANFACINE HYDROCHLORIDE [Suspect]
     Indication: ATTENTION DEFICIT/HYPERACTIVITY DISORDER
     Dosage: (PHASE I) 4 MG, 1X/DAY:QD
     Route: 048
     Dates: start: 20101120, end: 20101122
  2. GUANFACINE HYDROCHLORIDE [Suspect]
     Dosage: (PHASE I) 1 MG, 1X/DAY:QD
     Route: 048
     Dates: start: 20101015, end: 20101022
  3. GUANFACINE HYDROCHLORIDE [Suspect]
     Dosage: (PHASE I) 2 MG, 1X/DAY:QD
     Route: 048
     Dates: start: 20101023, end: 20101105
  4. GUANFACINE HYDROCHLORIDE [Suspect]
     Dosage: (PHASE I) 3 MG, 1X/DAY:QD
     Route: 048
     Dates: start: 20101106, end: 20101117

REACTIONS (1)
  - SYNCOPE [None]
